FAERS Safety Report 8511231-3 (Version None)
Quarter: 2012Q3

REPORT INFORMATION
  Report Type: 
  Country: None (occurrence: None)
  Receive Date: 20120716
  Receipt Date: 20120710
  Transmission Date: 20120928
  Serious: Yes (Hospitalization)
  Sender: FDA-Public Use
  Company Number: PHHY2012FR060455

PATIENT
  Sex: Male

DRUGS (8)
  1. LOVENOX [Concomitant]
     Dosage: 4000 IU, BID
     Dates: start: 20120606, end: 20120613
  2. VANCOMYCIN HCL [Suspect]
     Dosage: 1 G, UNK
     Route: 042
     Dates: start: 20120607, end: 20120607
  3. VANCOMYCIN HCL [Suspect]
     Indication: ANTIBIOTIC THERAPY
     Dosage: 2 G, Q24H
     Route: 042
     Dates: start: 20120606, end: 20120606
  4. CIPROFLOXACIN [Concomitant]
     Dates: start: 20120606, end: 20120608
  5. PREVISCAN [Concomitant]
     Dosage: 0.75 DF, UNK
     Route: 048
  6. AMIODARONE HCL [Concomitant]
     Dosage: 1 DF, UNK
     Route: 048
  7. PERINDOPRIL ERBUMINE [Concomitant]
     Dosage: 1 DF, UNK
  8. BISOPROLOL FUMARATE AND HYDROCHLOROTHIAZIDE [Concomitant]
     Dosage: 1 DF, UNK
     Route: 048

REACTIONS (2)
  - POST PROCEDURAL HAEMATOMA [None]
  - RENAL FAILURE ACUTE [None]
